FAERS Safety Report 6047132-2 (Version None)
Quarter: 2009Q1

REPORT INFORMATION
  Report Type: 
  Country: None (occurrence: None)
  Receive Date: 20090122
  Receipt Date: 20090113
  Transmission Date: 20090719
  Serious: Yes (Hospitalization, Other)
  Sender: FDA-Public Use
  Company Number: PHEH2007US15978

PATIENT
  Sex: Male

DRUGS (3)
  1. DESFERAL [Suspect]
     Indication: MYELODYSPLASTIC SYNDROME
     Dosage: UNK
     Dates: start: 20020101, end: 20050101
  2. EXJADE [Suspect]
     Indication: MYELODYSPLASTIC SYNDROME
     Dosage: 2500 MG, QD
     Route: 048
     Dates: start: 20060307
  3. EXJADE [Suspect]
     Dosage: 2500 MG, QD
     Route: 048

REACTIONS (34)
  - ALANINE AMINOTRANSFERASE INCREASED [None]
  - ANAEMIA [None]
  - BACK PAIN [None]
  - BLOOD ALKALINE PHOSPHATASE INCREASED [None]
  - BLOOD GLUCOSE INCREASED [None]
  - CHEST PAIN [None]
  - CHOLELITHIASIS [None]
  - DEBRIDEMENT [None]
  - DERMAL CYST [None]
  - DRUG HYPERSENSITIVITY [None]
  - DYSPNOEA [None]
  - ERYTHEMA [None]
  - GLOMERULAR FILTRATION RATE DECREASED [None]
  - HAEMATOCRIT DECREASED [None]
  - HAEMOGLOBIN DECREASED [None]
  - HYPERHIDROSIS [None]
  - HYPERTENSION [None]
  - INDURATION [None]
  - MUCORMYCOSIS [None]
  - PAIN [None]
  - PALPITATIONS [None]
  - PLATELET COUNT DECREASED [None]
  - POLLAKIURIA [None]
  - RENAL CYST [None]
  - RENAL IMPAIRMENT [None]
  - SECRETION DISCHARGE [None]
  - SKIN GRAFT [None]
  - SKIN INFECTION [None]
  - SKIN NECROSIS [None]
  - SKIN ULCER [None]
  - SOFT TISSUE INFECTION [None]
  - SWELLING [None]
  - WHITE BLOOD CELL COUNT DECREASED [None]
  - WHITE BLOOD CELL COUNT INCREASED [None]
